FAERS Safety Report 4968512-X (Version None)
Quarter: 2006Q2

REPORT INFORMATION
  Report Type: 
  Country: None (occurrence: None)
  Receive Date: 20060410
  Receipt Date: 20050829
  Transmission Date: 20061013
  Serious: Yes (Hospitalization, Disabling, Other)
  Sender: FDA-Public Use
  Company Number: US-MERCK-0508USA04732

PATIENT
  Age: 55 Year
  Sex: Male
  Weight: 109 kg

DRUGS (14)
  1. VIOXX [Suspect]
     Indication: ARTHRITIS
     Route: 048
     Dates: start: 19990101, end: 20040101
  2. VIOXX [Suspect]
     Route: 048
  3. GLUCOTROL [Concomitant]
     Route: 065
  4. ATENOLOL [Concomitant]
     Route: 065
  5. ACCUPRIL [Concomitant]
     Route: 065
  6. LIPITOR [Concomitant]
     Route: 065
  7. BUMEX [Concomitant]
     Route: 065
  8. BUMEX [Concomitant]
     Route: 065
  9. PROZAC [Concomitant]
     Route: 065
  10. PLAVIX [Concomitant]
     Route: 065
  11. NORVASC [Concomitant]
     Route: 065
  12. MAGNESIUM (UNSPECIFIED) [Concomitant]
     Route: 065
  13. CALCIUM (UNSPECIFIED) [Concomitant]
     Route: 065
  14. VITAMIN D (UNSPECIFIED) [Concomitant]
     Route: 065

REACTIONS (20)
  - ABDOMINAL PAIN [None]
  - ABDOMINAL PAIN LOWER [None]
  - ANGINA PECTORIS [None]
  - ARTERIOSCLEROSIS CORONARY ARTERY [None]
  - BACK INJURY [None]
  - BLOOD CHOLESTEROL INCREASED [None]
  - BLOOD PRESSURE INADEQUATELY CONTROLLED [None]
  - CEREBROVASCULAR ACCIDENT [None]
  - CEREBROVASCULAR DISORDER [None]
  - CHEST PAIN [None]
  - CHRONIC OBSTRUCTIVE PULMONARY DISEASE [None]
  - CORONARY ARTERY DISEASE [None]
  - CORONARY ARTERY STENOSIS [None]
  - GASTROOESOPHAGEAL REFLUX DISEASE [None]
  - HYPERLIPIDAEMIA [None]
  - MYOCARDIAL INFARCTION [None]
  - NON-CARDIAC CHEST PAIN [None]
  - OBESITY [None]
  - RHINITIS ALLERGIC [None]
  - SLEEP APNOEA SYNDROME [None]
